FAERS Safety Report 9983266 (Version 1)
Quarter: 2014Q1

REPORT INFORMATION
  Report Type: Report from Study
  Country: US (occurrence: US)
  Receive Date: 20140307
  Receipt Date: 20140307
  Transmission Date: 20141002
  Serious: No
  Sender: FDA-Public Use
  Company Number: US-ABBVIE-13P-163-1178255-00

PATIENT
  Sex: Male

DRUGS (4)
  1. HUMIRA [Suspect]
     Indication: CROHN^S DISEASE
     Dates: start: 20130928
  2. PREDNISONE [Concomitant]
     Indication: CROHN^S DISEASE
  3. PREDNISONE [Concomitant]
     Dosage: DOSE DECREASED 2 WEEKS AGO
     Dates: start: 201311
  4. PENTASA [Concomitant]
     Indication: CROHN^S DISEASE

REACTIONS (2)
  - Nasopharyngitis [Recovering/Resolving]
  - Headache [Recovering/Resolving]
